FAERS Safety Report 19119574 (Version 7)
Quarter: 2022Q4

REPORT INFORMATION
  Report Type: Report from Study
  Country: JP (occurrence: JP)
  Receive Date: 20210412
  Receipt Date: 20221014
  Transmission Date: 20230113
  Serious: Yes (Hospitalization, Other)
  Sender: FDA-Public Use
  Company Number: JP-ONO-2021JP008750

PATIENT
  Age: 53 Year
  Sex: Male
  Weight: 87.5 kg

DRUGS (6)
  1. ETELCALCETIDE [Suspect]
     Active Substance: ETELCALCETIDE
     Indication: Hyperparathyroidism secondary
     Dosage: 5 MILLIGRAM, Q56H
     Route: 010
     Dates: start: 20181130
  2. Calfina [Concomitant]
     Dosage: 0.5 MICROGRAM, QD
     Route: 048
  3. CALCIUM CARBONATE [Concomitant]
     Active Substance: CALCIUM CARBONATE
     Dosage: 3000 MILLIGRAM, QD
     Route: 048
  4. BIXALOMER [Concomitant]
     Active Substance: BIXALOMER
     Dosage: 3750 MILLIGRAM, QD
     Route: 048
     Dates: end: 20190317
  5. FOSRENOL [Concomitant]
     Active Substance: LANTHANUM CARBONATE
     Dosage: 2250 MILLIGRAM, QD
     Route: 048
  6. P-tol [Concomitant]
     Dosage: 750 MILLIGRAM, QD
     Route: 048
     Dates: start: 20190318

REACTIONS (9)
  - Angina unstable [Recovered/Resolved]
  - Device related infection [Recovered/Resolved]
  - Cellulitis [Recovered/Resolved]
  - Peripheral arterial occlusive disease [Recovered/Resolved]
  - Cellulitis [Recovered/Resolved]
  - Hyperglycaemic hyperosmolar nonketotic syndrome [Recovering/Resolving]
  - Muscular weakness [Recovering/Resolving]
  - Myocardial ischaemia [Recovered/Resolved]
  - Cardiac failure chronic [Recovering/Resolving]

NARRATIVE: CASE EVENT DATE: 20200709
